FAERS Safety Report 9806422 (Version 1)
Quarter: 2014Q1

REPORT INFORMATION
  Report Type: Spontaneous
  Country: IT (occurrence: None)
  Receive Date: 20140107
  Receipt Date: 20140107
  Transmission Date: 20141002
  Serious: Yes (Death)
  Sender: FDA-Public Use
  Company Number: 2014P1000040

PATIENT
  Age: 77 Year
  Sex: Male

DRUGS (11)
  1. LANOXIN [Suspect]
     Indication: CARDIAC FAILURE
     Route: 048
     Dates: start: 20100101, end: 20131014
  2. LANOXIN [Suspect]
     Indication: CARDIAC FAILURE
     Route: 048
     Dates: start: 20100101, end: 20131014
  3. WARFARIN SODIUM (COUMADIN) [Concomitant]
  4. SPIRONOLACTONE (ALDACTONE) [Concomitant]
  5. DIMENHYDRINATE (NOVOMIN) [Concomitant]
  6. NITROGLYCERINE (TRINIPLAS) [Concomitant]
  7. ALFUZOSIN HYDROCHLORIDE (XATRAL) [Concomitant]
  8. FRUSEMIDE (FUROSEMIDE) [Concomitant]
  9. CARVEDILOL [Concomitant]
  10. SIMVASTATIN [Concomitant]
  11. ENALAPRIL [Concomitant]

REACTIONS (6)
  - Cardiac arrest [None]
  - Hyperkalaemia [None]
  - Toxicity to various agents [None]
  - Ecchymosis [None]
  - Hypercoagulation [None]
  - Pulmonary embolism [None]
